FAERS Safety Report 16799187 (Version 1)
Quarter: 2019Q4

REPORT INFORMATION
  Report Type: Spontaneous
  Country: US (occurrence: US)
  Receive Date: 20190911
  Receipt Date: 20190911
  Transmission Date: 20200122
  Serious: Yes (Life-Threatening, Hospitalization)
  Sender: FDA-Public Use
  Company Number: None

PATIENT
  Sex: Female
  Weight: 96.62 kg

DRUGS (1)
  1. INVEGA [Suspect]
     Active Substance: PALIPERIDONE

REACTIONS (4)
  - Intentional self-injury [None]
  - Respiration abnormal [None]
  - Obsessive-compulsive disorder [None]
  - Sleep disorder [None]

NARRATIVE: CASE EVENT DATE: 20190703
